FAERS Safety Report 18848688 (Version 8)
Quarter: 2022Q2

REPORT INFORMATION
  Report Type: Spontaneous
  Country: US (occurrence: US)
  Receive Date: 20210204
  Receipt Date: 20220526
  Transmission Date: 20220721
  Serious: Yes (Other)
  Sender: FDA-Public Use
  Company Number: US-PFIZER INC-2021106504

PATIENT
  Age: 71 Year
  Sex: Female

DRUGS (2)
  1. IBRANCE [Suspect]
     Active Substance: PALBOCICLIB
     Indication: Breast cancer female
     Dosage: 125 MG
  2. IBRANCE [Suspect]
     Active Substance: PALBOCICLIB
     Indication: Bone cancer

REACTIONS (13)
  - White blood cell count decreased [Unknown]
  - Cardiac disorder [Unknown]
  - Platelet disorder [Unknown]
  - Dyspnoea [Recovering/Resolving]
  - Neoplasm progression [Unknown]
  - Lung disorder [Unknown]
  - Scar [Unknown]
  - Radiation injury [Unknown]
  - Fatigue [Unknown]
  - Asthenia [Unknown]
  - Visual impairment [Unknown]
  - Pruritus [Unknown]
  - Nervous system disorder [Unknown]
